FAERS Safety Report 6946272-0 (Version None)
Quarter: 2010Q3

REPORT INFORMATION
  Report Type: 
  Country: None (occurrence: None)
  Receive Date: 20100827
  Receipt Date: 20100728
  Transmission Date: 20110219
  Serious: Yes (Other)
  Sender: FDA-Public Use
  Company Number: PHEH2006US15191

PATIENT
  Sex: Male

DRUGS (10)
  1. ZOMETA [Suspect]
  2. PREDNISONE [Concomitant]
  3. PROSCAR [Concomitant]
  4. BIAXIN [Concomitant]
  5. THALIDOMIDE [Concomitant]
  6. FOLIC ACID [Concomitant]
  7. VITAMIN B6 [Concomitant]
  8. IRON [Concomitant]
  9. ALKERAN [Concomitant]
  10. NORVASC [Concomitant]

REACTIONS (14)
  - ANXIETY [None]
  - DECREASED INTEREST [None]
  - DYSPLASTIC NAEVUS SYNDROME [None]
  - FISTULA [None]
  - GENERAL PHYSICAL HEALTH DETERIORATION [None]
  - LIMB CRUSHING INJURY [None]
  - OSTEONECROSIS OF JAW [None]
  - PAIN [None]
  - PSORIASIS [None]
  - SEBORRHOEIC KERATOSIS [None]
  - SYNOVIAL DISORDER [None]
  - TENDON SHEATH INCISION [None]
  - TENOLYSIS [None]
  - TOOTH FRACTURE [None]
